FAERS Safety Report 25057912 (Version 1)
Quarter: 2025Q1

REPORT INFORMATION
  Report Type: Spontaneous
  Country: US (occurrence: US)
  Receive Date: 20250310
  Receipt Date: 20250310
  Transmission Date: 20250408
  Serious: Yes (Other)
  Sender: ALVOGEN
  Company Number: None

PATIENT

DRUGS (1)
  1. DEXTROAMPHETAMINE SACCHARATE, AMPHETAMINE ASPARTATE, DEXTROAMPHETAMINE [Suspect]
     Active Substance: AMPHETAMINE ASPARTATE\AMPHETAMINE SULFATE\DEXTROAMPHETAMINE SACCHARATE\DEXTROAMPHETAMINE SULFATE
     Indication: Product used for unknown indication

REACTIONS (9)
  - Deafness unilateral [Unknown]
  - Mood swings [Unknown]
  - Job dissatisfaction [Unknown]
  - Tinnitus [Not Recovered/Not Resolved]
  - Acne [Unknown]
  - Headache [Unknown]
  - Personal relationship issue [Unknown]
  - Product quality issue [Unknown]
  - Product physical issue [Unknown]
